FAERS Safety Report 7753225-1 (Version None)
Quarter: 2011Q3

REPORT INFORMATION
  Report Type: 
  Country: None (occurrence: None)
  Receive Date: 20110915
  Receipt Date: 20110902
  Transmission Date: 20111222
  Serious: Yes (Other)
  Sender: FDA-Public Use
  Company Number: JP-US-EMD SERONO, INC.-7080570

PATIENT
  Sex: Female
  Weight: 54 kg

DRUGS (6)
  1. SUPRECUR [Concomitant]
     Indication: TRANSPLANT
  2. SUPRECUR [Concomitant]
     Indication: IN VITRO FERTILISATION
     Route: 045
     Dates: start: 20110410, end: 20110420
  3. GONAL-F RFF PEN [Suspect]
     Indication: TRANSPLANT
  4. GONAL-F RFF PEN [Suspect]
     Indication: IN VITRO FERTILISATION
     Route: 058
     Dates: start: 20110413, end: 20110419
  5. CHORIONIC GONADOTROPIN [Concomitant]
     Indication: IN VITRO FERTILISATION
     Route: 030
     Dates: start: 20110420, end: 20110420
  6. CHORIONIC GONADOTROPIN [Concomitant]
     Indication: TRANSPLANT

REACTIONS (1)
  - ABORTION SPONTANEOUS COMPLETE [None]
